FAERS Safety Report 8391619-4 (Version None)
Quarter: 2012Q1

REPORT INFORMATION
  Report Type: 
  Country: None (occurrence: None)
  Receive Date: 20120323
  Receipt Date: 20110329
  Transmission Date: 20120608
  Serious: Yes (Other)
  Sender: FDA-Public Use
  Company Number: 163-21880-11033469

PATIENT
  Age: 47 Year
  Sex: Female
  Weight: 67.586 kg

DRUGS (7)
  1. MOBIC [Concomitant]
  2. SYNTHROID [Concomitant]
  3. FLUOXETINE [Concomitant]
  4. DEPO-PROVERA [Concomitant]
  5. REVLIMID [Suspect]
     Indication: MYELODYSPLASTIC SYNDROME
     Dosage: 25 MG, FOR 21 DAYS OUT OF A 28 DAY CYCLE, PO ; 10 MG, FOR 21 DAYS OUT A 28 DAY CYCLE, PO
     Route: 048
     Dates: start: 20110201, end: 20110301
  6. REVLIMID [Suspect]
     Indication: MYELODYSPLASTIC SYNDROME
     Dosage: 25 MG, FOR 21 DAYS OUT OF A 28 DAY CYCLE, PO ; 10 MG, FOR 21 DAYS OUT A 28 DAY CYCLE, PO
     Route: 048
     Dates: start: 20110321
  7. POTASSIUM CHLORIDE [Concomitant]

REACTIONS (2)
  - PANCYTOPENIA [None]
  - RASH [None]
